FAERS Safety Report 8016801-7 (Version None)
Quarter: 2012Q1

REPORT INFORMATION
  Report Type: 
  Country: None (occurrence: None)
  Receive Date: 20120102
  Receipt Date: 20111227
  Transmission Date: 20120608
  Serious: Yes (Other)
  Sender: FDA-Public Use
  Company Number: DE-BRISTOL-MYERS SQUIBB COMPANY-16215204

PATIENT
  Age: 49 Year
  Sex: Female
  Weight: 90 kg

DRUGS (3)
  1. CLOMIPRAMINE HCL [Suspect]
     Indication: DEPRESSION
     Dosage: LONGER TIME IN SEP11
     Route: 048
     Dates: start: 20100801
  2. ABILIFY [Suspect]
     Indication: SCHIZOAFFECTIVE DISORDER
     Dosage: DOSE REDUCED TO 7.5MG,5MG TO 10MG TO 15MG
     Route: 048
     Dates: start: 20110901, end: 20111101
  3. CLOMIPRAMINE HCL [Suspect]
     Indication: SCHIZOPHRENIA
     Dosage: LONGER TIME IN SEP11
     Route: 048
     Dates: start: 20100801

REACTIONS (2)
  - SEROTONIN SYNDROME [None]
  - HALLUCINATION, AUDITORY [None]
